FAERS Safety Report 25229689 (Version 2)
Quarter: 2025Q2

REPORT INFORMATION
  Report Type: Spontaneous
  Country: BD (occurrence: BD)
  Receive Date: 20250423
  Receipt Date: 20250513
  Transmission Date: 20250717
  Serious: Yes (Life-Threatening, Hospitalization)
  Sender: ACCORD
  Company Number: BD-MLMSERVICE-20250407-PI472440-00218-1

PATIENT
  Age: 40 Year
  Sex: Male

DRUGS (4)
  1. METHOTREXATE [Suspect]
     Active Substance: METHOTREXATE
     Indication: Seronegative arthritis
     Route: 048
  2. NAPROXEN [Suspect]
     Active Substance: NAPROXEN
     Indication: Seronegative arthritis
  3. PREDNISOLONE [Concomitant]
     Active Substance: PREDNISOLONE
     Indication: Seronegative arthritis
  4. NAPROXEN [Suspect]
     Active Substance: NAPROXEN
     Indication: Seronegative arthritis

REACTIONS (11)
  - Mucosal ulceration [Recovering/Resolving]
  - Genital erosion [Recovering/Resolving]
  - Rash pustular [Recovering/Resolving]
  - Blister [Recovering/Resolving]
  - Erythema [Recovering/Resolving]
  - Dysuria [Recovering/Resolving]
  - Inappropriate schedule of product administration [Unknown]
  - Pancytopenia [Recovering/Resolving]
  - Oral candidiasis [Recovering/Resolving]
  - Agranulocytosis [Recovering/Resolving]
  - Mouth ulceration [Recovering/Resolving]
